FAERS Safety Report 6633869-0 (Version None)
Quarter: 2010Q1

REPORT INFORMATION
  Report Type: 
  Country: None (occurrence: None)
  Receive Date: 20100315
  Receipt Date: 20100303
  Transmission Date: 20100710
  Serious: Yes (Other)
  Sender: FDA-Public Use
  Company Number: JP-ELI_LILLY_AND_COMPANY-JP201003002902

PATIENT
  Sex: Female

DRUGS (3)
  1. HUMALOG [Suspect]
     Indication: DIABETES MELLITUS
     Dosage: 10 IU, 3/D
     Route: 058
     Dates: start: 20100201
  2. HUMALOG MIX 75/25 [Suspect]
     Indication: DIABETES MELLITUS
     Dosage: 32 IU, DAILY (1/D)
     Route: 058
     Dates: end: 20100201
  3. HUMALOG MIX 75/25 [Suspect]
     Dosage: 22 IU, EACH EVENING
     Route: 058
     Dates: end: 20100201

REACTIONS (3)
  - BLOOD GLUCOSE INCREASED [None]
  - HOT FLUSH [None]
  - VISUAL IMPAIRMENT [None]
